FAERS Safety Report 5474382-6 (Version None)
Quarter: 2007Q3

REPORT INFORMATION
  Report Type: 
  Country: None (occurrence: None)
  Receive Date: 20070831
  Receipt Date: 20070410
  Transmission Date: 20080115
  Serious: No
  Sender: FDA-Public Use
  Company Number: 239719

PATIENT
  Age: 77 Year
  Sex: Female

DRUGS (4)
  1. LUCENTIS [Suspect]
     Indication: DRUG USE FOR UNKNOWN INDICATION
     Dates: start: 20060601
  2. LIPITOR [Concomitant]
  3. SYNTHROID [Concomitant]
  4. CELEXA [Concomitant]

REACTIONS (1)
  - STAPHYLOCOCCAL INFECTION [None]
